FAERS Safety Report 18340236 (Version 1)
Quarter: 2020Q4

REPORT INFORMATION
  Report Type: Spontaneous
  Country: GB (occurrence: GB)
  Receive Date: 20201002
  Receipt Date: 20201002
  Transmission Date: 20210113
  Serious: Yes (Hospitalization, Other)
  Sender: FDA-Public Use
  Company Number: GB-TEVA-2020-GB-1833422

PATIENT
  Age: 63 Year
  Sex: Female
  Weight: 75 kg

DRUGS (11)
  1. CLONAZEPAM. [Concomitant]
     Active Substance: CLONAZEPAM
     Dosage: 500 MICROGRAM DAILY; NIGHT
     Dates: start: 20200716
  2. CO-DYDRAMOL [Concomitant]
     Active Substance: ACETAMINOPHEN\DIHYDROCODEINE
     Dosage: TAKE 1 OR 2 TABS 4 TIMES/DAY. MAX 8 IN 24 HRS 10MG/500MG
     Dates: start: 20200625, end: 20200828
  3. VAGIFEM [Concomitant]
     Active Substance: ESTRADIOL
     Dosage: 10 MICROGRAM DAILY; NIGHTLY
     Dates: start: 20200828
  4. CIMETIDINE [Concomitant]
     Active Substance: CIMETIDINE
     Dosage: ONCE OR TWICE DAILY 200MG/5M
     Dates: start: 20200604, end: 20200828
  5. PIZOTIFEN [Concomitant]
     Active Substance: PIZOTYLINE
     Dosage: 500 MICROGRAM DAILY; NIGHT
     Dates: start: 20200619
  6. SERTRALINE [Concomitant]
     Active Substance: SERTRALINE HYDROCHLORIDE
     Dates: start: 20200813
  7. OMEGA-3-ACID ETHYL ESTERS 90 [Concomitant]
     Active Substance: OMEGA-3-ACID ETHYL ESTERS
     Dates: start: 20200623
  8. DOXAZOSIN [Suspect]
     Active Substance: DOXAZOSIN MESYLATE
     Indication: HYPERTENSION
     Route: 048
     Dates: start: 20200828
  9. FYBOGEL [Concomitant]
     Active Substance: PLANTAGO OVATA SEED
     Dates: start: 20200813
  10. PREGABALIN. [Concomitant]
     Active Substance: PREGABALIN
     Dates: start: 20200702
  11. RABEPRAZOLE [Concomitant]
     Active Substance: RABEPRAZOLE
     Dates: start: 20200805, end: 20200828

REACTIONS (1)
  - Chest pain [Recovering/Resolving]

NARRATIVE: CASE EVENT DATE: 20200828
